FAERS Safety Report 17997229 (Version 2)
Quarter: 2020Q4

REPORT INFORMATION
  Report Type: Spontaneous
  Country: US (occurrence: US)
  Receive Date: 20200708
  Receipt Date: 20201121
  Transmission Date: 20210113
  Serious: No
  Sender: FDA-Public Use
  Company Number: US-MERZ PHARMACEUTICALS GMBH-20-01969

PATIENT
  Age: 60 Year
  Sex: Female

DRUGS (4)
  1. ARAVA [Concomitant]
     Active Substance: LEFLUNOMIDE
  2. ENBREL [Concomitant]
     Active Substance: ETANERCEPT
  3. METHOTREXATE. [Concomitant]
     Active Substance: METHOTREXATE
  4. ASCLERA [Suspect]
     Active Substance: POLIDOCANOL
     Indication: SCLEROTHERAPY
     Dosage: 10CC
     Route: 042
     Dates: start: 20200513, end: 20200513

REACTIONS (3)
  - Cellulitis [Unknown]
  - Injection site erythema [Unknown]
  - Skin necrosis [Unknown]
